FAERS Safety Report 8309457-7 (Version None)
Quarter: 2012Q2

REPORT INFORMATION
  Report Type: 
  Country: None (occurrence: None)
  Receive Date: 20120424
  Receipt Date: 20120424
  Transmission Date: 20120825
  Serious: Yes (Hospitalization)
  Sender: FDA-Public Use
  Company Number: None

PATIENT
  Age: 71 Year
  Sex: Male

DRUGS (1)
  1. LINEZOLID [Suspect]
     Indication: OSTEOMYELITIS
     Dosage: 600 MG BID PO
     Route: 048
     Dates: start: 20120217, end: 20120316

REACTIONS (2)
  - LOSS OF CONSCIOUSNESS [None]
  - PANCYTOPENIA [None]
